FAERS Safety Report 11555173 (Version 3)
Quarter: 2015Q3

REPORT INFORMATION
  Report Type: Spontaneous
  Country: FR (occurrence: FR)
  Receive Date: 20150925
  Receipt Date: 20150930
  Transmission Date: 20151125
  Serious: Yes (Hospitalization)
  Sender: FDA-Public Use
  Company Number: FR-PFIZER INC-2015314766

PATIENT
  Age: 83 Year
  Sex: Female

DRUGS (19)
  1. LYRICA [Suspect]
     Active Substance: PREGABALIN
     Dosage: UNK
     Route: 048
  2. STILNOX [Suspect]
     Active Substance: ZOLPIDEM TARTRATE
     Dosage: UNK
     Route: 048
  3. KALEORID [Concomitant]
     Active Substance: POTASSIUM CHLORIDE
  4. PANTOPRAZOLE SODIUM. [Concomitant]
     Active Substance: PANTOPRAZOLE SODIUM
  5. DAFALGAN [Concomitant]
     Active Substance: ACETAMINOPHEN
  6. UVEDOSE [Concomitant]
     Active Substance: CHOLECALCIFEROL
  7. LEVOTHYROX [Concomitant]
     Active Substance: LEVOTHYROXINE
     Dosage: UNK
  8. TENORMIN [Suspect]
     Active Substance: ATENOLOL
     Dosage: UNK
     Route: 048
  9. VITAMINE C [Concomitant]
  10. IRON [Concomitant]
     Active Substance: IRON
  11. MITOSYL [Concomitant]
  12. ADALAT [Suspect]
     Active Substance: NIFEDIPINE
     Dosage: UNK
     Route: 048
  13. LASILIX [Suspect]
     Active Substance: FUROSEMIDE
     Route: 048
  14. FOLIC ACID. [Concomitant]
     Active Substance: FOLIC ACID
  15. XANAX [Suspect]
     Active Substance: ALPRAZOLAM
     Route: 048
  16. KARDEGIC [Concomitant]
     Active Substance: ASPIRIN LYSINE
     Dosage: 75
  17. TRIMEBUTINE MALEATE [Concomitant]
     Active Substance: TRIMEBUTINE MALEATE
  18. CRESTOR [Concomitant]
     Active Substance: ROSUVASTATIN CALCIUM
     Dosage: 5
  19. FLECTOR [Concomitant]
     Active Substance: DICLOFENAC EPOLAMINE

REACTIONS (8)
  - Headache [Recovered/Resolved]
  - Orthostatic hypotension [Unknown]
  - Visual impairment [Recovered/Resolved]
  - Fall [Unknown]
  - Oedema peripheral [Unknown]
  - Malaise [Recovered/Resolved]
  - Presyncope [Unknown]
  - Oedema peripheral [Unknown]

NARRATIVE: CASE EVENT DATE: 201505
